FAERS Safety Report 6287447-6 (Version None)
Quarter: 2009Q3

REPORT INFORMATION
  Report Type: 
  Country: None (occurrence: None)
  Receive Date: 20090727
  Receipt Date: 20090714
  Transmission Date: 20100115
  Serious: Yes (Death)
  Sender: FDA-Public Use
  Company Number: 1000007121

PATIENT
  Age: 84 Year
  Sex: Male

DRUGS (11)
  1. MEMANTINE (MEMANTINE HYDROCHLORIDE) (TABLETS) [Suspect]
     Indication: DELUSION
     Dosage: 10 MG (10 MG, 1 IN 1 D), ORAL
     Route: 048
     Dates: start: 20090601
  2. OLANZAPINE [Suspect]
     Indication: DELUSION
     Dosage: 10 MG (10 MG, 1 IN 1 D), ORAL
     Route: 048
  3. WARFARIN SODIUM [Suspect]
     Indication: ANTICOAGULANT THERAPY
  4. SIMVASTATINE (TABLETS) [Concomitant]
  5. FUROSEMIDE (TABLETS) [Concomitant]
  6. ALDACTONE [Concomitant]
  7. RANITIDINE [Concomitant]
  8. TIOTROPIUM (POWDER) [Concomitant]
  9. NITROGLYCERINE (TABLETS) [Concomitant]
  10. MOLSIDOMINE (TABLETS) [Concomitant]
  11. DIGOXIN [Concomitant]

REACTIONS (1)
  - CEREBRAL HAEMORRHAGE [None]
